FAERS Safety Report 8244494-2 (Version None)
Quarter: 2012Q1

REPORT INFORMATION
  Report Type: 
  Country: None (occurrence: None)
  Receive Date: 20120329
  Receipt Date: 20120314
  Transmission Date: 20120608
  Serious: Yes (Hospitalization)
  Sender: FDA-Public Use
  Company Number: PHHY2012CH023198

PATIENT
  Age: 43 Year
  Sex: Female

DRUGS (12)
  1. NEORAL [Suspect]
     Dosage: 100 MG, UNK
     Route: 048
  2. NEORAL [Suspect]
     Dosage: 50 MG, UNK
     Route: 048
  3. SODIUM POLYSTYRENE SULFONATE [Concomitant]
     Dosage: 15 MG, BID
  4. EFFEXOR [Concomitant]
     Dosage: 75 MG, UNK
     Route: 048
     Dates: start: 20110901, end: 20111201
  5. REMERON [Concomitant]
     Dosage: 15 MG, UNK
     Route: 048
     Dates: end: 20111201
  6. SEBIVO [Concomitant]
     Dosage: 600 MG, UNK
     Route: 048
  7. DEXTROSE [Concomitant]
     Dosage: UNK UKN, UNK
  8. INSULIN [Concomitant]
     Dosage: UNK UKN, UNK
  9. AZATHIOPRINE SODIUM [Concomitant]
     Indication: LIVER TRANSPLANT
     Dosage: 50 MG, UNK
     Route: 048
     Dates: start: 20111001
  10. NEORAL [Suspect]
     Indication: LIVER TRANSPLANT
     Dosage: 150 MG, UNK
     Route: 048
     Dates: start: 20111001
  11. NEXIUM [Concomitant]
     Dosage: 40 MG, UNK
     Route: 042
     Dates: end: 20111201
  12. ASPIRIN [Concomitant]
     Dosage: 100 MG, UNK
     Route: 048
     Dates: start: 20111001

REACTIONS (7)
  - MUSCULAR WEAKNESS [None]
  - MYALGIA [None]
  - RENAL FAILURE ACUTE [None]
  - IMMUNOSUPPRESSANT DRUG LEVEL INCREASED [None]
  - MYOSITIS [None]
  - HYPERKALAEMIA [None]
  - ARTHRALGIA [None]
